FAERS Safety Report 15766350 (Version 1)
Quarter: 2018Q4

REPORT INFORMATION
  Report Type: Spontaneous
  Country: US (occurrence: US)
  Receive Date: 20181207
  Receipt Date: 20181207
  Transmission Date: 20190205
  Serious: Yes (Hospitalization)
  Sender: FDA-Public Use
  Company Number: None

PATIENT
  Age: 70 Year
  Sex: Female
  Weight: 92.25 kg

DRUGS (2)
  1. LEVOFLOXACIN. [Suspect]
     Active Substance: LEVOFLOXACIN
     Route: 048
  2. ALLOPURINOL. [Suspect]
     Active Substance: ALLOPURINOL

REACTIONS (4)
  - Drug reaction with eosinophilia and systemic symptoms [None]
  - Blood creatinine increased [None]
  - Rebound effect [None]
  - Angioedema [None]

NARRATIVE: CASE EVENT DATE: 20180203
